FAERS Safety Report 8303577-9 (Version None)
Quarter: 2012Q2

REPORT INFORMATION
  Report Type: 
  Country: None (occurrence: None)
  Receive Date: 20120416
  Receipt Date: 20120403
  Transmission Date: 20120825
  Serious: Yes (Death)
  Sender: FDA-Public Use
  Company Number: 2012031949

PATIENT
  Age: 26 Year
  Sex: Male

DRUGS (1)
  1. VIVAGLOBIN [Suspect]
     Route: 058
     Dates: start: 20081008

REACTIONS (3)
  - PULMONARY VASCULITIS [None]
  - VASCULITIS CEREBRAL [None]
  - CUTANEOUS VASCULITIS [None]
